FAERS Safety Report 15811833 (Version 1)
Quarter: 2019Q1

REPORT INFORMATION
  Report Type: Spontaneous
  Country: US (occurrence: US)
  Receive Date: 20190102
  Receipt Date: 20190102
  Transmission Date: 20190417
  Serious: No
  Sender: FDA-Public Use
  Company Number: None

PATIENT

DRUGS (2)
  1. ACETAMINOPHEN AND CODEINE [Suspect]
     Active Substance: ACETAMINOPHEN\CODEINE PHOSPHATE
  2. HYDROMORPHONE [Suspect]
     Active Substance: HYDROMORPHONE

REACTIONS (2)
  - Product name confusion [None]
  - Product appearance confusion [None]
